FAERS Safety Report 13547241 (Version 2)
Quarter: 2017Q3

REPORT INFORMATION
  Report Type: Report from Study
  Country: US (occurrence: US)
  Receive Date: 20170515
  Receipt Date: 20170718
  Transmission Date: 20171127
  Serious: Yes (Death, Hospitalization, Other)
  Sender: FDA-Public Use
  Company Number: US-ARIAD PHARMACEUTICALS, INC-2017US008017

PATIENT
  Age: 74 Year
  Sex: Female

DRUGS (2)
  1. ICLUSIG [Suspect]
     Active Substance: PONATINIB
     Indication: CHRONIC MYELOID LEUKAEMIA
     Dosage: 15 MG, WEEKLY
     Route: 048
     Dates: start: 20160123, end: 201702
  2. ICLUSIG [Suspect]
     Active Substance: PONATINIB
     Dosage: 15 MG, 2X/MONTH
     Route: 048
     Dates: start: 20170328

REACTIONS (5)
  - Pyelonephritis [Unknown]
  - Diabetic complication [Unknown]
  - Haemochromatosis [Unknown]
  - Death [Fatal]
  - Pancreatic neoplasm [Not Recovered/Not Resolved]

NARRATIVE: CASE EVENT DATE: 201706
